FAERS Safety Report 10274038 (Version 1)
Quarter: 2014Q3

REPORT INFORMATION
  Report Type: Spontaneous
  Country: CH (occurrence: CH)
  Receive Date: 20140702
  Receipt Date: 20140702
  Transmission Date: 20150326
  Serious: Yes (Hospitalization)
  Sender: FDA-Public Use
  Company Number: CH-JNJFOC-20140619354

PATIENT
  Age: 42 Year
  Sex: Female
  Weight: 70 kg

DRUGS (4)
  1. REMICADE [Suspect]
     Active Substance: INFLIXIMAB
     Indication: ANKYLOSING SPONDYLITIS
     Route: 042
     Dates: start: 20140305
  2. INDACATEROL [Concomitant]
     Active Substance: INDACATEROL
     Indication: ASTHMA
     Route: 055
  3. BUDESONIDE. [Concomitant]
     Active Substance: BUDESONIDE
     Indication: ASTHMA
     Route: 055
  4. REMICADE [Suspect]
     Active Substance: INFLIXIMAB
     Indication: ANKYLOSING SPONDYLITIS
     Dosage: ONCE EVERY 7-8 WEEKS
     Route: 042
     Dates: start: 2006

REACTIONS (2)
  - Acute myeloid leukaemia [Not Recovered/Not Resolved]
  - Tonsillitis [Unknown]

NARRATIVE: CASE EVENT DATE: 20140508
